FAERS Safety Report 17854803 (Version 2)
Quarter: 2021Q1

REPORT INFORMATION
  Report Type: Spontaneous
  Country: US (occurrence: US)
  Receive Date: 20200603
  Receipt Date: 20210301
  Transmission Date: 20210419
  Serious: Yes (Other)
  Sender: FDA-Public Use
  Company Number: US-PFIZER INC-2020216951

PATIENT
  Age: 90 Year
  Sex: Female

DRUGS (2)
  1. IBRANCE [Suspect]
     Active Substance: PALBOCICLIB
     Dosage: 125 MG, CYCLIC
     Dates: start: 20181025
  2. IBRANCE [Suspect]
     Active Substance: PALBOCICLIB
     Dosage: UNK MG
     Dates: start: 20191218

REACTIONS (2)
  - COVID-19 [Recovered/Resolved]
  - White blood cell count decreased [Unknown]
